FAERS Safety Report 8378874-1 (Version None)
Quarter: 2012Q2

REPORT INFORMATION
  Report Type: 
  Country: None (occurrence: None)
  Receive Date: 20120522
  Receipt Date: 20120522
  Transmission Date: 20120825
  Serious: No
  Sender: FDA-Public Use
  Company Number: None

PATIENT
  Age: 74 Year
  Sex: Female
  Weight: 45.1 kg

DRUGS (17)
  1. ALBUMIN (HUMAN) [Concomitant]
  2. ENALAPRILAT [Concomitant]
  3. MORPHINE [Concomitant]
  4. ENALAPRILAT [Concomitant]
  5. NITROGLYCERIN [Concomitant]
  6. FUROSEMIDE [Concomitant]
  7. ALBUMINAR-25 [Suspect]
     Indication: CENTRAL VENOUS PRESSURE DECREASED
     Dosage: 100G X 1 IV
     Route: 042
     Dates: start: 20120418, end: 20120418
  8. ALBUMINAR-25 [Suspect]
     Indication: CENTRAL VENOUS PRESSURE DECREASED
     Dosage: 100G X 1 IV
     Route: 042
     Dates: start: 20120420, end: 20120420
  9. ALBUMIN (HUMAN) [Concomitant]
  10. CEFAZOLIN [Concomitant]
  11. ASPIRIN [Concomitant]
  12. ALBUMIN (HUMAN) [Concomitant]
  13. INSULIN DRIP [Concomitant]
  14. SUCRALFATE [Concomitant]
  15. POTASSIUM CHLORIDE [Concomitant]
  16. DOBUTAMINE HCL [Concomitant]
  17. DOPAMINE HCL [Concomitant]

REACTIONS (1)
  - BLOOD PRESSURE SYSTOLIC DECREASED [None]
